FAERS Safety Report 18097939 (Version 1)
Quarter: 2020Q3

REPORT INFORMATION
  Report Type: Spontaneous
  Country: US (occurrence: US)
  Receive Date: 20200731
  Receipt Date: 20200731
  Transmission Date: 20201103
  Serious: Yes (Hospitalization)
  Sender: FDA-Public Use
  Company Number: US-STRIDES ARCOLAB LIMITED-2020SP008682

PATIENT
  Age: 5 Month
  Sex: Female

DRUGS (1)
  1. TRIAMCINOLONE ACETONIDE. [Suspect]
     Active Substance: TRIAMCINOLONE ACETONIDE
     Indication: DERMATITIS DIAPER
     Dosage: INCORRECTLY APPLIED THE CREAM 4?5 TIMES DAILY
     Route: 061

REACTIONS (7)
  - Adrenal insufficiency [Unknown]
  - Cushingoid [Recovered/Resolved]
  - Cushing^s syndrome [Recovered/Resolved]
  - Weight increased [Recovered/Resolved]
  - Skin atrophy [Unknown]
  - Intentional product misuse [Unknown]
  - Hypophagia [Unknown]
